FAERS Safety Report 6380119-9 (Version None)
Quarter: 2009Q3

REPORT INFORMATION
  Report Type: 
  Country: None (occurrence: None)
  Receive Date: 20090929
  Receipt Date: 20080226
  Transmission Date: 20100115
  Serious: Yes (Hospitalization)
  Sender: FDA-Public Use
  Company Number: US-ASTRAZENECA-2007UW28992

PATIENT
  Age: 40 Year
  Sex: Male
  Weight: 99.8 kg

DRUGS (4)
  1. SEROQUEL [Suspect]
     Indication: SCHIZOPHRENIA
     Route: 048
     Dates: start: 20040101
  2. SEROQUEL [Suspect]
     Route: 048
     Dates: start: 20060101, end: 20060907
  3. SEROQUEL [Suspect]
     Route: 048
     Dates: start: 20070801
  4. RISPERDAL [Concomitant]
     Dates: start: 20070301, end: 20070925

REACTIONS (7)
  - BLINDNESS [None]
  - DIABETES MELLITUS [None]
  - DIABETIC KETOACIDOSIS [None]
  - DYSLIPIDAEMIA [None]
  - HYPERTRIGLYCERIDAEMIA [None]
  - SEXUAL DYSFUNCTION [None]
  - TYPE 1 DIABETES MELLITUS [None]
